FAERS Safety Report 20630969 (Version 1)
Quarter: 2022Q1

REPORT INFORMATION
  Report Type: Spontaneous
  Country: GB (occurrence: GB)
  Receive Date: 20220324
  Receipt Date: 20220324
  Transmission Date: 20220423
  Serious: Yes (Other)
  Sender: FDA-Public Use
  Company Number: GB-MHRA-MED-202203111110309970-MA4SE

PATIENT
  Age: 76 Year
  Sex: Female
  Weight: 65 kg

DRUGS (2)
  1. METRONIDAZOLE [Suspect]
     Active Substance: METRONIDAZOLE
     Indication: Product used for unknown indication
     Dosage: 400 MILLIGRAM, TWO TIMES A DAY
     Route: 065
     Dates: start: 20220303, end: 20220305
  2. OMEPRAZOLE [Concomitant]
     Active Substance: OMEPRAZOLE
     Indication: Adverse drug reaction
     Dosage: UNK
     Route: 065

REACTIONS (1)
  - Migraine [Recovering/Resolving]

NARRATIVE: CASE EVENT DATE: 20220303
